FAERS Safety Report 7211019-X (Version None)
Quarter: 2011Q1

REPORT INFORMATION
  Report Type: 
  Country: None (occurrence: None)
  Receive Date: 20110105
  Receipt Date: 20110103
  Transmission Date: 20110831
  Serious: Yes (Hospitalization)
  Sender: FDA-Public Use
  Company Number: Z0007237A

PATIENT
  Sex: Female
  Weight: 65 kg

DRUGS (2)
  1. LAPATINIB [Suspect]
     Dosage: 1250MG PER DAY
     Route: 048
     Dates: start: 20101215
  2. VINORELBINE [Suspect]
     Dosage: 20MGM2 CYCLIC
     Route: 042
     Dates: start: 20101215

REACTIONS (4)
  - DIZZINESS [None]
  - COUGH [None]
  - NEUTROPENIA [None]
  - FEBRILE INFECTION [None]
